FAERS Safety Report 10066609 (Version 1)
Quarter: 2014Q2

REPORT INFORMATION
  Report Type: Report from Study
  Country: US (occurrence: US)
  Receive Date: 20140408
  Receipt Date: 20140408
  Transmission Date: 20141212
  Serious: Yes (Death)
  Sender: FDA-Public Use
  Company Number: PHEH2014US006737

PATIENT
  Age: 73 Year
  Sex: Female

DRUGS (8)
  1. ZOMETA [Suspect]
     Indication: BONE CANCER
     Dosage: 4 MG, UNK
  2. ZOMETA [Suspect]
     Indication: COMPLEX PARTIAL SEIZURES
  3. ZOMETA [Suspect]
     Indication: EPILEPSY
  4. ZOMETA [Suspect]
     Indication: OFF LABEL USE
  5. SANDOSTATIN LAR DEPOT [Suspect]
     Indication: BONE CANCER
     Dosage: 20 MG, UNK
  6. SANDOSTATIN LAR DEPOT [Suspect]
     Indication: COMPLEX PARTIAL SEIZURES
  7. SANDOSTATIN LAR DEPOT [Suspect]
     Indication: EPILEPSY
  8. SANDOSTATIN LAR DEPOT [Suspect]
     Indication: OFF LABEL USE

REACTIONS (1)
  - Death [Fatal]
